FAERS Safety Report 6203125-3 (Version None)
Quarter: 2009Q2

REPORT INFORMATION
  Report Type: 
  Country: None (occurrence: None)
  Receive Date: 20090521
  Receipt Date: 20090513
  Transmission Date: 20091009
  Serious: Yes (Disabling)
  Sender: FDA-Public Use
  Company Number: GXKR2009GB05811

PATIENT
  Age: 80 Year
  Sex: Female
  Weight: 47.6 kg

DRUGS (3)
  1. SIMVASTATIN [Suspect]
     Indication: HYPERCHOLESTEROLAEMIA
     Dosage: 40 MG, ORAL
     Route: 048
     Dates: start: 20081203, end: 20090427
  2. ACETYLSALICYLIC ACID (ACETYSALICYLIC ACID) [Concomitant]
  3. RAMIPRIL [Concomitant]

REACTIONS (1)
  - NIGHTMARE [None]
